FAERS Safety Report 7010622-X (Version None)
Quarter: 2010Q3

REPORT INFORMATION
  Report Type: 
  Country: None (occurrence: None)
  Receive Date: 20100923
  Receipt Date: 20100915
  Transmission Date: 20110219
  Serious: Yes (Other)
  Sender: FDA-Public Use
  Company Number: US-GENENTECH-287669

PATIENT
  Sex: Female
  Weight: 119.27 kg

DRUGS (18)
  1. XOLAIR [Suspect]
     Indication: ASTHMA
     Dosage: 300 MG, Q4W
     Route: 058
     Dates: start: 20061121, end: 20090424
  2. ADVAIR DISKUS 100/50 [Concomitant]
     Indication: ASTHMA
     Dosage: UNK
     Route: 055
     Dates: start: 20090301
  3. PROVENTIL [Concomitant]
     Indication: ASTHMA
     Dosage: UNK
     Route: 055
  4. VERAMYST [Concomitant]
     Indication: RHINITIS
     Dosage: 2 UNK, QD
     Route: 045
     Dates: start: 20080101
  5. SYNTHROID [Concomitant]
     Indication: HYPOTHYROIDISM
     Dosage: 0.2 MG, UNK
     Route: 048
  6. CARDIZEM [Concomitant]
     Indication: HYPERTENSION
     Dosage: 210 MG, UNK
  7. ESTRADIOL [Concomitant]
     Indication: POSTMENOPAUSE
     Dosage: 1.25 MG, UNK
     Route: 048
  8. PROMETRIUM [Concomitant]
     Indication: POSTMENOPAUSE
     Dosage: 100 MG, UNK
     Route: 048
  9. ALBUTEROL/ALBUTEROL SULFATE/IPRATROPIUM BROMI [Concomitant]
     Indication: ASTHMA
     Dosage: UNK
     Route: 055
  10. ASMANEX TWISTHALER [Concomitant]
     Indication: ASTHMA
     Dosage: 440 MG, BID
     Dates: start: 20080327
  11. DEPLIN [Concomitant]
     Indication: FOLATE DEFICIENCY
     Dosage: 7.5 MG, UNK
     Route: 048
  12. SINGULAIR [Concomitant]
     Indication: ASTHMA
     Dosage: 10 MG, UNK
     Route: 048
  13. NUVIGIL [Concomitant]
     Indication: ASTHENIA
     Dosage: 150 MG, UNK
     Route: 048
     Dates: start: 20100115
  14. ALVESCO [Concomitant]
     Indication: ASTHMA
     Dosage: 160 A?G, BID
  15. FORADIL [Concomitant]
     Indication: ASTHMA
     Dosage: 2 A?G, BID
  16. VITAMIN D3 [Concomitant]
     Indication: ASTHMA
     Dosage: UNK
     Route: 048
  17. ALPHA LIPOIC ACID [Concomitant]
     Indication: VITAMIN SUPPLEMENTATION
     Dosage: 600 A?G, QD
     Route: 048
  18. MIRAPEX [Concomitant]
     Indication: RESTLESS LEGS SYNDROME
     Dosage: 0.5 MG, PRN
     Route: 048

REACTIONS (9)
  - ANXIETY [None]
  - BLOOD PRESSURE INCREASED [None]
  - DYSPNOEA [None]
  - FLUSHING [None]
  - HEADACHE [None]
  - HYPERSENSITIVITY [None]
  - PALPITATIONS [None]
  - SENSATION OF FOREIGN BODY [None]
  - THROAT TIGHTNESS [None]
